FAERS Safety Report 4817045-X (Version None)
Quarter: 2005Q4

REPORT INFORMATION
  Report Type: 
  Country: None (occurrence: None)
  Receive Date: 20051101
  Receipt Date: 20051021
  Transmission Date: 20060501
  Serious: Yes (Death)
  Sender: FDA-Public Use
  Company Number: GB-GLAXOSMITHKLINE-B0398680A

PATIENT
  Sex: Male

DRUGS (8)
  1. PREDNISOLONE [Suspect]
     Route: 065
  2. SERETIDE [Suspect]
     Route: 055
  3. VENTOLIN [Suspect]
     Route: 055
  4. COMBIVENT [Suspect]
     Route: 055
  5. DIDRONEL [Suspect]
     Route: 065
  6. FRUSEMIDE [Suspect]
     Route: 065
  7. THEOPHYLLINE [Suspect]
     Route: 065
  8. THEOPHYLLINE [Suspect]
     Route: 065

REACTIONS (1)
  - CHRONIC OBSTRUCTIVE PULMONARY DISEASE [None]
